FAERS Safety Report 5488878-4 (Version None)
Quarter: 2007Q4

REPORT INFORMATION
  Report Type: 
  Country: None (occurrence: None)
  Receive Date: 20071017
  Receipt Date: 20071002
  Transmission Date: 20080405
  Serious: Yes (Death)
  Sender: FDA-Public Use
  Company Number: MA-GENENTECH-215790

PATIENT
  Sex: Male
  Weight: 61 kg

DRUGS (1)
  1. BEVACIZUMAB [Suspect]
     Indication: COLORECTAL CANCER METASTATIC
     Dosage: 457 MG, Q3W
     Route: 042
     Dates: start: 20050425

REACTIONS (1)
  - COLONIC OBSTRUCTION [None]
